FAERS Safety Report 5827555-4 (Version None)
Quarter: 2008Q3

REPORT INFORMATION
  Report Type: 
  Country: None (occurrence: None)
  Receive Date: 20080730
  Receipt Date: 20080723
  Transmission Date: 20090109
  Serious: Yes (Other)
  Sender: FDA-Public Use
  Company Number: US-ASTRAZENECA-2008UW14528

PATIENT
  Sex: Female
  Weight: 158 kg

DRUGS (6)
  1. CRESTOR [Suspect]
     Indication: BLOOD CHOLESTEROL INCREASED
     Route: 048
     Dates: start: 20070101, end: 20080401
  2. ISRADIPINE [Concomitant]
  3. PROPANOLOL ER [Concomitant]
  4. ASPIRIN [Concomitant]
  5. ARICEPT [Concomitant]
  6. METHIMAZOLE [Concomitant]

REACTIONS (3)
  - HYPOAESTHESIA [None]
  - MOVEMENT DISORDER [None]
  - PAIN IN EXTREMITY [None]
